FAERS Safety Report 7358196-8 (Version None)
Quarter: 2011Q1

REPORT INFORMATION
  Report Type: 
  Country: None (occurrence: None)
  Receive Date: 20110307
  Receipt Date: 20100615
  Transmission Date: 20110831
  Serious: No
  Sender: FDA-Public Use
  Company Number: AEUSA201000223

PATIENT
  Age: 64 Year
  Sex: Female
  Weight: 59.8748 kg

DRUGS (1)
  1. PROLASTIN-C [Suspect]
     Indication: ALPHA-1 ANTI-TRYPSIN DEFICIENCY
     Dosage: 4200 MG;QW;IV
     Route: 042
     Dates: start: 20100504, end: 20100511

REACTIONS (2)
  - DYSURIA [None]
  - BLOOD URINE PRESENT [None]
